FAERS Safety Report 20815231 (Version 5)
Quarter: 2023Q1

REPORT INFORMATION
  Report Type: Spontaneous
  Country: US (occurrence: US)
  Receive Date: 20220511
  Receipt Date: 20230308
  Transmission Date: 20230417
  Serious: Yes (Hospitalization, Other)
  Sender: FDA-Public Use
  Company Number: US-PFIZER INC-202200398510

PATIENT
  Age: 80 Year
  Sex: Female

DRUGS (2)
  1. AROMASIN [Suspect]
     Active Substance: EXEMESTANE
     Indication: Breast cancer female
     Dosage: UNK
  2. AROMASIN [Suspect]
     Active Substance: EXEMESTANE
     Indication: Breast cancer female
     Dosage: 25 MG

REACTIONS (7)
  - Diverticulitis [Unknown]
  - Stress [Unknown]
  - Insomnia [Unknown]
  - Weight increased [Unknown]
  - Decreased appetite [Unknown]
  - COVID-19 [Unknown]
  - Pain [Unknown]
